FAERS Safety Report 24063194 (Version 4)
Quarter: 2024Q3

REPORT INFORMATION
  Report Type: Report from Study
  Country: PK (occurrence: PK)
  Receive Date: 20240709
  Receipt Date: 20240829
  Transmission Date: 20241016
  Serious: Yes (Other)
  Sender: ROCHE
  Company Number: PK-ROCHE-10000014737

PATIENT
  Age: 52 Year
  Sex: Male

DRUGS (3)
  1. RITUXIMAB [Suspect]
     Active Substance: RITUXIMAB
     Indication: Follicular lymphoma
     Dosage: NEXT DOSE WAS 600 MG.
     Route: 042
     Dates: start: 20240610
  2. RITUXIMAB [Suspect]
     Active Substance: RITUXIMAB
     Route: 042
     Dates: start: 20240628
  3. RITUXIMAB [Suspect]
     Active Substance: RITUXIMAB
     Route: 042
     Dates: start: 20240812

REACTIONS (3)
  - Weight increased [Unknown]
  - Lymphoma transformation [Unknown]
  - Weight decreased [Unknown]

NARRATIVE: CASE EVENT DATE: 20240610
